FAERS Safety Report 7818153 (Version 2)
Quarter: 2013Q1

REPORT INFORMATION
  Report Type: Spontaneous
  Country: US (occurrence: None)
  Receive Date: 20110125
  Receipt Date: 20121108
  Transmission Date: 20140127
  Serious: Yes (Disabling, Other)
  Sender: FDA-Public Use
  Company Number: 2011MA000457

PATIENT
  Sex: Female
  Weight: 49.9 kg

DRUGS (18)
  1. METOCLOPRAMIDE [Suspect]
     Indication: GASTROINTESTINAL DISORDER
     Dosage: PO
     Route: 048
     Dates: start: 20050214, end: 20060205
  2. ALBUTEROL [Concomitant]
  3. ALLEGRA [Concomitant]
  4. BUDEPRION [Concomitant]
  5. CALCIUM [Concomitant]
  6. CITALOPRAM [Concomitant]
  7. ESTRADIOL [Concomitant]
  8. FERROUS SULFATE [Concomitant]
  9. FEXOFENADINE [Concomitant]
  10. FLUOXETINE [Concomitant]
  11. HYDROCODONE [Concomitant]
  12. LAMISIL [Concomitant]
  13. LORAZEPAM [Concomitant]
  14. MIRTAZAPINE [Concomitant]
  15. NEXIUM [Concomitant]
  16. PROZAC [Concomitant]
  17. TEMAZEPAM [Concomitant]
  18. VICODIN [Concomitant]

REACTIONS (16)
  - Extrapyramidal disorder [None]
  - Economic problem [None]
  - Activities of daily living impaired [None]
  - Deformity [None]
  - Pain [None]
  - Unevaluable event [None]
  - Anxiety [None]
  - Multiple injuries [None]
  - Gastric ulcer [None]
  - Depression [None]
  - Gastrooesophageal reflux disease [None]
  - Muscle spasms [None]
  - Weight decreased [None]
  - Vision blurred [None]
  - Dyskinesia [None]
  - Nervous system disorder [None]
